FAERS Safety Report 7308203-3 (Version None)
Quarter: 2011Q1

REPORT INFORMATION
  Report Type: 
  Country: None (occurrence: None)
  Receive Date: 20110223
  Receipt Date: 20110217
  Transmission Date: 20110831
  Serious: Yes (Hospitalization)
  Sender: FDA-Public Use
  Company Number: US-BRISTOL-MYERS SQUIBB COMPANY-15563521

PATIENT
  Age: 69 Year
  Sex: Male

DRUGS (2)
  1. CELECOXIB [Suspect]
     Indication: ARTHRALGIA
  2. COUMADIN [Suspect]
     Dosage: FEW TIMES 600MG WEEKLY

REACTIONS (4)
  - GASTROINTESTINAL DISORDER [None]
  - LARGE INTESTINAL ULCER HAEMORRHAGE [None]
  - RENAL FAILURE ACUTE [None]
  - HAEMOGLOBIN DECREASED [None]
